FAERS Safety Report 7046067-6 (Version None)
Quarter: 2010Q4

REPORT INFORMATION
  Report Type: 
  Country: None (occurrence: None)
  Receive Date: 20101014
  Receipt Date: 20101006
  Transmission Date: 20110411
  Serious: Yes (Hospitalization)
  Sender: FDA-Public Use
  Company Number: FR-TEVA-251044ISR

PATIENT
  Sex: Male

DRUGS (20)
  1. VINCRISTINE [Suspect]
     Indication: ACUTE MYELOID LEUKAEMIA
     Dosage: 2 MG/COURSE
     Route: 042
     Dates: start: 20090612, end: 20090626
  2. DAUNORUBICIN HCL [Suspect]
     Indication: ACUTE MYELOID LEUKAEMIA
     Route: 042
     Dates: start: 20090612, end: 20090626
  3. CYTARABINE [Suspect]
     Indication: ACUTE MYELOID LEUKAEMIA
     Route: 037
     Dates: start: 20090601
  4. CYTARABINE [Suspect]
     Route: 042
     Dates: start: 20090727, end: 20090829
  5. AMSACRIN [Suspect]
     Indication: ACUTE MYELOID LEUKAEMIA
     Route: 042
     Dates: start: 20090727, end: 20090729
  6. ASPARAGINASE [Suspect]
     Indication: ACUTE MYELOID LEUKAEMIA
     Route: 030
     Dates: start: 20090829
  7. IMMUNOGLOBULIN A [Suspect]
     Indication: ACUTE MYELOID LEUKAEMIA
     Dosage: 5 G, 10G OR 15 G PER COURSE
     Route: 042
     Dates: start: 20090930, end: 20091105
  8. METHOTREXATE [Suspect]
     Indication: BONE MARROW TRANSPLANT
     Route: 037
     Dates: start: 20090601, end: 20090601
  9. METHOTREXATE [Suspect]
     Indication: ACUTE MYELOID LEUKAEMIA
     Route: 042
     Dates: start: 20091028
  10. PREDNISONE [Concomitant]
     Dates: start: 20090612, end: 20090626
  11. HYDROCORTISONE [Concomitant]
     Dates: start: 20090601
  12. PENTAMIDINE ISETHIONATE [Concomitant]
  13. HEPARIN [Concomitant]
     Indication: PROPHYLAXIS
  14. CEFTAZIDIME [Concomitant]
  15. VANCOMYCIN [Concomitant]
  16. FLUCONAZOLE [Concomitant]
  17. AMPHOTERICIN B [Concomitant]
  18. ACYCLOVIR [Concomitant]
  19. NALBUPHINE [Concomitant]
  20. OMEPRAZOLE [Concomitant]

REACTIONS (1)
  - PULMONARY EMBOLISM [None]
